FAERS Safety Report 19981386 (Version 1)
Quarter: 2021Q4

REPORT INFORMATION
  Report Type: Other
  Country: US (occurrence: US)
  Receive Date: 20211021
  Receipt Date: 20211021
  Transmission Date: 20220303
  Serious: Yes (Other)
  Sender: FDA-Public Use
  Company Number: US-ROCHE-2935196

PATIENT
  Sex: Male

DRUGS (1)
  1. XELODA [Suspect]
     Active Substance: CAPECITABINE
     Indication: Colorectal cancer metastatic
     Dosage: TAKE 3 TABLET(S) BY MOUTH EVERY MORNING AND TAKE 4 TABLET(S) BY MOUTH EVERY EVENING ON MONDAY-FRIDAY
     Route: 048

REACTIONS (3)
  - Delirium [Unknown]
  - Illness [Unknown]
  - Muscular weakness [Unknown]
